FAERS Safety Report 9467437 (Version 2)
Quarter: 2013Q4

REPORT INFORMATION
  Report Type: Spontaneous
  Country: JP (occurrence: JP)
  Receive Date: 20130821
  Receipt Date: 20131206
  Transmission Date: 20140711
  Serious: Yes (Other)
  Sender: FDA-Public Use
  Company Number: PHHY2013JP089697

PATIENT
  Age: 54 Year
  Sex: Female

DRUGS (1)
  1. NEORAL [Suspect]
     Dosage: 250 MG, DAILY
     Route: 048

REACTIONS (3)
  - Unresponsive to stimuli [Unknown]
  - Sensory loss [Unknown]
  - Hypoaesthesia [Unknown]
